FAERS Safety Report 7840802-2 (Version None)
Quarter: 2011Q4

REPORT INFORMATION
  Report Type: 
  Country: None (occurrence: None)
  Receive Date: 20111021
  Receipt Date: 20111021
  Transmission Date: 20120403
  Serious: Yes (Death, Hospitalization)
  Sender: FDA-Public Use
  Company Number: None

PATIENT
  Sex: Female

DRUGS (2)
  1. DECITABINE [Suspect]
     Dosage: 20MG/M^2/DAY IV DAYS 1-5 OF 28 DAY CYCLE
     Route: 042
     Dates: start: 20110822, end: 20111015
  2. LBH 589B [Suspect]
     Indication: ACUTE MYELOID LEUKAEMIA
     Dosage: 40 MG/DAY PO 3X A WEEK ON NONCONSECUTIVE DAYS DURING THE FIRST TWO WEEKS IF TREATMENT
     Route: 048
     Dates: start: 20110822, end: 20111015

REACTIONS (2)
  - GENERAL PHYSICAL HEALTH DETERIORATION [None]
  - PNEUMONIA FUNGAL [None]
